FAERS Safety Report 7170887-0 (Version None)
Quarter: 2010Q4

REPORT INFORMATION
  Report Type: 
  Country: None (occurrence: None)
  Receive Date: 20101206
  Receipt Date: 20101125
  Transmission Date: 20110411
  Serious: Yes (Hospitalization)
  Sender: FDA-Public Use
  Company Number: TCI2010A05335

PATIENT
  Age: 75 Year
  Sex: Female

DRUGS (14)
  1. LANSOPRAZOLE [Suspect]
     Indication: REFLUX OESOPHAGITIS
     Dosage: 15 MG (15 MG, 1 IN 1 D), PER ORAL
     Route: 048
     Dates: start: 20100714, end: 20101006
  2. MYONAL (EPERISONE HYDROCHLORIDE) [Concomitant]
  3. GASCON (DIMETICONE) [Concomitant]
  4. CRESTOR [Concomitant]
  5. EONALON (ALENDRONIC ACID) [Concomitant]
  6. ETODOLAC [Concomitant]
  7. AM (SODIUM BICARBONATE, CALCIUM CARBONATE, MAGNESIUM CARBONATE, ALUMIN [Concomitant]
  8. MUCOSTA(REBAMIPIDE) [Concomitant]
  9. WARKMIN (ALFACALCIDOL) [Concomitant]
  10. LENDORMIN (BROTIZOLAN) [Concomitant]
  11. PURSENNID (SENNA ALEXANDRINA LEAF) [Concomitant]
  12. OPALMON (LIMAPROST) [Concomitant]
  13. RINDERDN (BETAMETHASONE) [Concomitant]
  14. XYLOCAINE C(LIDOCAINE HYDROCHLORIDE) [Concomitant]

REACTIONS (10)
  - BLOOD URINE PRESENT [None]
  - COLITIS COLLAGENOUS [None]
  - FLATULENCE [None]
  - HYPOKALAEMIA [None]
  - HYPOPROTEINAEMIA [None]
  - ILEUS [None]
  - LARGE INTESTINAL ULCER [None]
  - PYREXIA [None]
  - URINE KETONE BODY PRESENT [None]
  - WEIGHT DECREASED [None]
